FAERS Safety Report 5782535-2 (Version None)
Quarter: 2008Q2

REPORT INFORMATION
  Report Type: 
  Country: None (occurrence: None)
  Receive Date: 20080623
  Receipt Date: 20080619
  Transmission Date: 20081010
  Serious: Yes (Death, Hospitalization)
  Sender: FDA-Public Use
  Company Number: US-GILEAD-2008-0016698

PATIENT

DRUGS (13)
  1. LETAIRIS [Suspect]
     Indication: PULMONARY HYPERTENSION
     Route: 048
     Dates: start: 20080214, end: 20080519
  2. LASIX [Concomitant]
     Route: 048
  3. TIKOSYN [Concomitant]
     Route: 048
  4. ACCUPRIL [Concomitant]
     Route: 048
  5. CARDIZEM CD [Concomitant]
     Route: 048
  6. CELEBREX [Concomitant]
     Route: 048
  7. ASPIRIN [Concomitant]
     Route: 048
  8. XOPENEX [Concomitant]
     Dosage: 1.25/3 ML
     Route: 055
  9. SINGULAIR [Concomitant]
  10. COUMADIN [Concomitant]
     Route: 048
  11. COUMADIN [Concomitant]
     Route: 048
  12. ADVAIR DISKUS 100/50 [Concomitant]
     Dosage: 500/50 BID
  13. OXYGEN [Concomitant]
     Dosage: 3-4 LITERS
     Route: 055

REACTIONS (4)
  - DYSPNOEA [None]
  - FATIGUE [None]
  - OEDEMA PERIPHERAL [None]
  - WEIGHT INCREASED [None]
